FAERS Safety Report 23559171 (Version 1)
Quarter: 2024Q1

REPORT INFORMATION
  Report Type: Spontaneous
  Country: DE (occurrence: DE)
  Receive Date: 20240223
  Receipt Date: 20240223
  Transmission Date: 20240410
  Serious: Yes (Hospitalization, Other)
  Sender: FDA-Public Use
  Company Number: None

PATIENT
  Sex: Female
  Weight: 60 kg

DRUGS (10)
  1. ESCITALOPRAM [Suspect]
     Active Substance: ESCITALOPRAM OXALATE
     Indication: Depression
     Dosage: UNK (1-0-0-0), 5 MG
     Route: 065
     Dates: end: 2023
  2. EXELON [Suspect]
     Active Substance: RIVASTIGMINE TARTRATE
     Indication: Dementia Alzheimer^s type
     Dosage: UNK, QD
     Route: 065
     Dates: start: 2013
  3. DEXAMETHASONE\NEOMYCIN SULFATE\POLYMYXIN B SULFATE [Suspect]
     Active Substance: DEXAMETHASONE\NEOMYCIN SULFATE\POLYMYXIN B SULFATE
     Indication: Product used for unknown indication
     Dosage: UNK
     Route: 065
  4. LITHIUM [Suspect]
     Active Substance: LITHIUM
     Indication: Product used for unknown indication
     Dosage: 1 DOSAGE FORM, QD
     Route: 065
     Dates: end: 2019
  5. MAGNESIUM [Suspect]
     Active Substance: MAGNESIUM
     Indication: Product used for unknown indication
     Dosage: 150 MG
     Route: 065
  6. NEVANAC [Suspect]
     Active Substance: NEPAFENAC
     Indication: Product used for unknown indication
     Dosage: UNK
     Route: 065
  7. CRENEZUMAB [Concomitant]
     Active Substance: CRENEZUMAB
     Indication: Product used for unknown indication
     Dosage: UNK, QD
     Route: 042
     Dates: start: 20190108, end: 20190108
  8. ETILEFRINE HYDROCHLORIDE [Concomitant]
     Active Substance: ETILEFRINE HYDROCHLORIDE
     Indication: Collateral circulation
     Dosage: UNK
     Route: 065
  9. CAMPHOR (SYNTHETIC)\MENTHOL [Concomitant]
     Active Substance: CAMPHOR (SYNTHETIC)\MENTHOL
     Indication: Product used for unknown indication
     Dosage: UNK
     Route: 065
  10. ESTRIOL [Concomitant]
     Active Substance: ESTRIOL
     Indication: Product used for unknown indication
     Dosage: UNK
     Route: 065

REACTIONS (23)
  - Aphasia [Not Recovered/Not Resolved]
  - Nausea [Unknown]
  - Asthenia [Recovered/Resolved]
  - Cardiovascular disorder [Unknown]
  - Vitamin B12 deficiency [Unknown]
  - Cognitive disorder [Not Recovered/Not Resolved]
  - Renal failure [Unknown]
  - Cataract [Unknown]
  - Blood pressure decreased [Recovered/Resolved]
  - Migraine [Unknown]
  - Dementia Alzheimer^s type [Not Recovered/Not Resolved]
  - Muscle spasms [Unknown]
  - Urinary tract infection [Unknown]
  - Restlessness [Unknown]
  - Epilepsy [Recovered/Resolved]
  - Varicose vein [Unknown]
  - Wrong technique in product usage process [Unknown]
  - Hip fracture [Recovered/Resolved]
  - Memory impairment [Not Recovered/Not Resolved]
  - Osteopenia [Unknown]
  - Fatigue [Unknown]
  - Product administration error [Unknown]
  - Muscle twitching [Recovering/Resolving]

NARRATIVE: CASE EVENT DATE: 20130101
